FAERS Safety Report 11957097 (Version 2)
Quarter: 2016Q1

REPORT INFORMATION
  Report Type: Report from Study
  Country: DE (occurrence: CL)
  Receive Date: 20160126
  Receipt Date: 20160219
  Transmission Date: 20160526
  Serious: Yes (Hospitalization, Other)
  Sender: FDA-Public Use
  Company Number: DE-ACTELION-A-NJ2016-130423

PATIENT
  Age: 42 Year
  Sex: Female

DRUGS (9)
  1. SERTRALINE [Concomitant]
     Active Substance: SERTRALINE HYDROCHLORIDE
     Dosage: UNK
  2. CLONAZEPAM. [Concomitant]
     Active Substance: CLONAZEPAM
     Dosage: UNK
  3. SPIRONOLACTONE. [Concomitant]
     Active Substance: SPIRONOLACTONE
     Dosage: UNK
  4. NEO-SINTROM [Concomitant]
     Active Substance: ACENOCOUMAROL
     Dosage: UNK
  5. OXYGEN. [Concomitant]
     Active Substance: OXYGEN
  6. SILDENAFIL. [Concomitant]
     Active Substance: SILDENAFIL
     Dosage: UNK
  7. FUROSEMIDE. [Concomitant]
     Active Substance: FUROSEMIDE
     Dosage: UNK
  8. VENTAVIS [Suspect]
     Active Substance: ILOPROST
     Indication: PULMONARY HYPERTENSION
     Dosage: 0.5 ML, 8ID
     Route: 055
     Dates: start: 20140516
  9. SLOW-K [Concomitant]
     Active Substance: POTASSIUM CHLORIDE
     Dosage: UNK

REACTIONS (14)
  - Abdominal distension [Recovering/Resolving]
  - Oxygen saturation decreased [Unknown]
  - Poor quality sleep [Unknown]
  - Gait disturbance [Unknown]
  - Skin ulcer [Recovering/Resolving]
  - Dyspnoea [Recovering/Resolving]
  - Anuria [Recovering/Resolving]
  - Cough [Not Recovered/Not Resolved]
  - Pain in extremity [Unknown]
  - Hypertension [Recovering/Resolving]
  - Nausea [Recovering/Resolving]
  - Pulmonary oedema [Recovering/Resolving]
  - Oedema peripheral [Recovering/Resolving]
  - Oedema peripheral [Unknown]

NARRATIVE: CASE EVENT DATE: 2014
